FAERS Safety Report 18895381 (Version 1)
Quarter: 2021Q1

REPORT INFORMATION
  Report Type: Report from Study
  Country: US (occurrence: US)
  Receive Date: 20210215
  Receipt Date: 20210215
  Transmission Date: 20210420
  Serious: Yes (Hospitalization, Other)
  Sender: FDA-Public Use
  Company Number: NVSC2021US027805

PATIENT
  Sex: Male

DRUGS (2)
  1. ENTRESTO [Suspect]
     Active Substance: SACUBITRIL\VALSARTAN
     Indication: CARDIAC FAILURE
     Dosage: UNK UNK, BID
     Route: 048
  2. FIBATOR [Concomitant]
     Active Substance: ATORVASTATIN\FENOFIBRATE
     Indication: PRODUCT USED FOR UNKNOWN INDICATION
     Dosage: UNK
     Route: 065

REACTIONS (7)
  - Heart valve incompetence [Unknown]
  - Sepsis [Unknown]
  - Drug ineffective [Recovering/Resolving]
  - Cardiac failure [Unknown]
  - Heart rate abnormal [Unknown]
  - Fracture [Unknown]
  - Cardiomegaly [Unknown]
